FAERS Safety Report 15180265 (Version 2)
Quarter: 2018Q3

REPORT INFORMATION
  Report Type: Spontaneous
  Country: CH (occurrence: CH)
  Receive Date: 20180723
  Receipt Date: 20180724
  Transmission Date: 20181010
  Serious: No
  Sender: FDA-Public Use
  Company Number: CH-BAYER-2018-133055

PATIENT
  Sex: Male
  Weight: 98 kg

DRUGS (1)
  1. ASPIRIN CARDIO 100 MG [Suspect]
     Active Substance: ASPIRIN

REACTIONS (5)
  - Rhinitis allergic [None]
  - Secretion discharge [None]
  - Rales [None]
  - Cough [None]
  - Influenza like illness [None]
